FAERS Safety Report 6076409-X (Version None)
Quarter: 2009Q1

REPORT INFORMATION
  Report Type: 
  Country: None (occurrence: None)
  Receive Date: 20090209
  Receipt Date: 20090128
  Transmission Date: 20090719
  Serious: No
  Sender: FDA-Public Use
  Company Number: 005561

PATIENT
  Age: 62 Year
  Sex: Male

DRUGS (6)
  1. BUSULFEX [Suspect]
     Indication: STEM CELL TRANSPLANT
     Dosage: 0.8 MG/KG INTRAVENOUS
     Route: 042
     Dates: start: 20090127, end: 20090128
  2. BUSULFEX [Suspect]
     Indication: STEM CELL TRANSPLANT
     Dosage: 0.8 MG/KG INTRAVENOUS
     Route: 042
     Dates: start: 20090129, end: 20090130
  3. FLUDRABINE PHOSPHATE (FLUDARABINE PHOSPHATE) [Concomitant]
  4. LYMPHOBLOBULINE (ANTITHYMOCYTE IMMUNOGLOBULIN) [Concomitant]
  5. PHENYTOIN [Concomitant]
  6. DEPAKENE [Concomitant]

REACTIONS (1)
  - CONVULSION [None]
